FAERS Safety Report 4562213-8 (Version None)
Quarter: 2005Q1

REPORT INFORMATION
  Report Type: 
  Country: None (occurrence: None)
  Receive Date: 20050121
  Receipt Date: 20050105
  Transmission Date: 20050727
  Serious: Yes (Other)
  Sender: FDA-Public Use
  Company Number: USA050187566

PATIENT
  Age: 41 Year
  Sex: Female

DRUGS (3)
  1. XIGRIS [Suspect]
     Indication: SEPSIS
     Dates: start: 20050104
  2. VASOPRESSOR [Concomitant]
  3. LEVOPHED (NORPINEPHRINE BITARTRATE) [Concomitant]

REACTIONS (2)
  - PLATELET AGGREGATION ABNORMAL [None]
  - SKIN DISCOLOURATION [None]
